FAERS Safety Report 20748886 (Version 2)
Quarter: 2022Q2

REPORT INFORMATION
  Report Type: Report from Study
  Country: AT (occurrence: AT)
  Receive Date: 20220426
  Receipt Date: 20220505
  Transmission Date: 20220720
  Serious: Yes (Life-Threatening, Other)
  Sender: FDA-Public Use
  Company Number: AT-BRISTOL-MYERS SQUIBB COMPANY-2022-027644

PATIENT
  Sex: Female
  Weight: 31 kg

DRUGS (3)
  1. NIVOLUMAB [Suspect]
     Active Substance: NIVOLUMAB
     Indication: Ewing^s sarcoma
     Dosage: DOSE OF LAST ADMINISTRATION: 93 MG
     Route: 042
     Dates: start: 20220310, end: 20220324
  2. ENTINOSTAT [Suspect]
     Active Substance: ENTINOSTAT
     Indication: Ewing^s sarcoma
     Dosage: DOSE OF LAST ADMINISTRATION: 4 MG
     Route: 048
     Dates: start: 20220303, end: 20220324
  3. DEXAMETHASONE [Concomitant]
     Active Substance: DEXAMETHASONE
     Indication: Pain
     Route: 048
     Dates: start: 20220329, end: 20220403

REACTIONS (1)
  - Diabetic ketoacidosis [Not Recovered/Not Resolved]

NARRATIVE: CASE EVENT DATE: 20220406
